FAERS Safety Report 22541767 (Version 1)
Quarter: 2023Q2

REPORT INFORMATION
  Report Type: Spontaneous
  Country: US (occurrence: None)
  Receive Date: 20230608
  Receipt Date: 20230608
  Transmission Date: 20230722
  Serious: Yes (Hospitalization)
  Sender: FDA-Public Use
  Company Number: None

PATIENT
  Age: 28 Year
  Sex: Male

DRUGS (1)
  1. RYBELSUS [Suspect]
     Active Substance: SEMAGLUTIDE
     Indication: Type 2 diabetes mellitus
     Dates: start: 20220304, end: 20220317

REACTIONS (12)
  - Therapy change [None]
  - Vomiting [None]
  - Abdominal pain [None]
  - Throat tightness [None]
  - Fatigue [None]
  - Hypophagia [None]
  - Dyspnoea [None]
  - Acute kidney injury [None]
  - Hiatus hernia [None]
  - Erosive oesophagitis [None]
  - Gastritis erosive [None]
  - Dehydration [None]

NARRATIVE: CASE EVENT DATE: 20220317
